FAERS Safety Report 5845136-3 (Version None)
Quarter: 2008Q3

REPORT INFORMATION
  Report Type: 
  Country: None (occurrence: None)
  Receive Date: 20080813
  Receipt Date: 20080813
  Transmission Date: 20090109
  Serious: Yes (Other)
  Sender: FDA-Public Use
  Company Number: None

PATIENT
  Age: 48 Year
  Sex: Male
  Weight: 90.7194 kg

DRUGS (2)
  1. METOPROLOL SUCCINATE EXTENDED RELEASE [Suspect]
     Indication: HEART RATE ABNORMAL
     Dosage: 100 MG 1 PO
     Route: 048
     Dates: start: 20070801, end: 20080301
  2. METOPROLOL SUCCINATE EXTENDED RELEASE [Suspect]
     Indication: HEART RATE ABNORMAL
     Dosage: 100 MG 1 PO
     Route: 048
     Dates: start: 20080718, end: 20080812

REACTIONS (2)
  - PHARMACEUTICAL PRODUCT COMPLAINT [None]
  - WEIGHT INCREASED [None]
